FAERS Safety Report 5914582-1 (Version None)
Quarter: 2008Q3

REPORT INFORMATION
  Report Type: 
  Country: None (occurrence: None)
  Receive Date: 20080909
  Receipt Date: 20071005
  Transmission Date: 20090109
  Serious: Yes (Hospitalization)
  Sender: FDA-Public Use
  Company Number: 163-20785-07100430 (0)

PATIENT
  Age: 72 Year
  Sex: Female
  Weight: 60.7 kg

DRUGS (23)
  1. THALOMID [Suspect]
     Indication: MULTIPLE MYELOMA
     Dosage: 200 MG ; 100 MG, DAILY, ORAL
     Route: 048
     Dates: start: 20041012, end: 20050725
  2. VELCADE [Suspect]
     Indication: MULTIPLE MYELOMA
     Dosage: 1 MG/M2 ; 20 MG, 4 DAYS EVERY 3 WEEKS
     Dates: start: 20041009, end: 20050729
  3. DEXAMETHASONE TAB [Suspect]
     Indication: MULTIPLE MYELOMA
     Dosage: 40 MG
     Dates: start: 20041012, end: 20050725
  4. DEXAMETHASONE TAB [Suspect]
     Indication: MULTIPLE MYELOMA
     Dosage: 40 MG
     Dates: end: 20070609
  5. CISPLATIN [Suspect]
     Indication: MULTIPLE MYELOMA
     Dosage: 10 MG/M2 - 7.5 MG/M2
     Dates: start: 20041012, end: 20050725
  6. ADRIAMYCIN PFS [Suspect]
     Indication: MULTIPLE MYELOMA
     Dosage: 10 MG/M2 - 7.5 MG/M2
     Dates: start: 20041012, end: 20050725
  7. CYCLOPHOSPHAMIDE [Suspect]
     Indication: MULTIPLE MYELOMA
     Dosage: 400 MG/M2 - 300 MG/M2
     Dates: start: 20041012, end: 20050725
  8. ETOPOSIDE [Suspect]
     Indication: MULTIPLE MYELOMA
     Dosage: 40 MG/M2 - 30 MG/M2
     Dates: start: 20041012, end: 20050725
  9. MELPHALAN (MELPHALAN) [Suspect]
     Indication: MULTIPLE MYELOMA
     Dosage: 140 MG/M2
     Dates: start: 20050104, end: 20050418
  10. ARANESP [Concomitant]
  11. AREDIA [Concomitant]
  12. LINDAMYACIN (IDARUBICIN HYDROCHLORIDE) [Concomitant]
  13. MAXIPIME [Concomitant]
  14. FOLATE (FOLIC ACID) [Concomitant]
  15. LOVENOX [Concomitant]
  16. ZANTAC 150 [Concomitant]
  17. DIFLUCAN [Concomitant]
  18. ACYCLOVIR [Concomitant]
  19. CALCIUM (CALCIUM) [Concomitant]
  20. ATENOLOL [Concomitant]
  21. SYNTHROID [Concomitant]
  22. ACIDOPHILUS (LACTOBACILLUS ACIDOPHILUS) (PILL) [Concomitant]
  23. BICARBONATE (SODIUM BICARBONATE) [Concomitant]

REACTIONS (1)
  - ATRIAL FIBRILLATION [None]
